FAERS Safety Report 4867128-3 (Version None)
Quarter: 2005Q4

REPORT INFORMATION
  Report Type: 
  Country: None (occurrence: None)
  Receive Date: 20051222
  Receipt Date: 20020310
  Transmission Date: 20060501
  Serious: Yes (Death, Hospitalization)
  Sender: FDA-Public Use
  Company Number: HQ4040129OCT1999

PATIENT
  Age: 40 Year
  Sex: Male

DRUGS (7)
  1. GEMTUZUMAB OZOGAMICIN [Suspect]
     Indication: ACUTE MYELOID LEUKAEMIA
     Dosage: 9 MG/M (2) [18 MG] INTRAVENOUS
     Route: 042
     Dates: start: 19990920, end: 19990920
  2. GEMTUZUMAB OZOGAMICIN [Suspect]
     Indication: ACUTE MYELOID LEUKAEMIA
     Dosage: 9 MG/M (2) [18 MG] INTRAVENOUS
     Route: 042
     Dates: start: 19991004, end: 19991004
  3. ALIZAPRIDE (ALIZAPRIDE) [Concomitant]
  4. PIPERACILLIN SODIUM W/TAZOBACTAM SODIUM [Concomitant]
  5. CLORAZEPATE        (CLORAZEPATE DIPOTASSIUM) [Concomitant]
  6. COLISTIN (COLISTIN) [Concomitant]
  7. CISAPRIDE         (CISAPRIDE) [Concomitant]

REACTIONS (9)
  - APLASIA [None]
  - CEREBRAL HAEMORRHAGE [None]
  - COMA [None]
  - FEBRILE NEUTROPENIA [None]
  - HAEMORRHAGIC STROKE [None]
  - HYPERTHERMIA [None]
  - MALAISE [None]
  - THROMBOCYTOPENIA [None]
  - WHITE BLOOD CELL COUNT DECREASED [None]
